FAERS Safety Report 21715551 (Version 4)
Quarter: 2023Q1

REPORT INFORMATION
  Report Type: Report from Study
  Country: US (occurrence: US)
  Receive Date: 20221212
  Receipt Date: 20230204
  Transmission Date: 20230417
  Serious: Yes (Other)
  Sender: FDA-Public Use
  Company Number: US-002147023-NVSC2022US287318

PATIENT
  Sex: Male

DRUGS (2)
  1. LEQVIO [Suspect]
     Active Substance: INCLISIRAN SODIUM
     Indication: Product used for unknown indication
     Dosage: UNK
     Route: 058
     Dates: start: 20221021
  2. LEQVIO [Suspect]
     Active Substance: INCLISIRAN SODIUM
     Dosage: UNK (TAKEN ON 20 JAN IN UNSPECIFIED YEAR)
     Route: 058

REACTIONS (6)
  - Dementia [Unknown]
  - Confusional state [Unknown]
  - Insomnia [Unknown]
  - Fluid retention [Unknown]
  - Illness [Unknown]
  - Blood cholesterol increased [Unknown]
